FAERS Safety Report 17530848 (Version 2)
Quarter: 2020Q2

REPORT INFORMATION
  Report Type: Report from Study
  Country: None (occurrence: BR)
  Receive Date: 20200312
  Receipt Date: 20200416
  Transmission Date: 20200713
  Serious: Yes (Hospitalization, Other)
  Sender: FDA-Public Use
  Company Number: BR-ABBVIE-20K-020-3313431-00

PATIENT
  Age: 50 Year
  Sex: Male
  Weight: 72 kg

DRUGS (1)
  1. HUMIRA [Suspect]
     Active Substance: ADALIMUMAB
     Indication: RHEUMATOID ARTHRITIS
     Route: 058
     Dates: start: 20190516, end: 20191219

REACTIONS (14)
  - Nosocomial infection [Recovered/Resolved]
  - Pleural effusion [Recovering/Resolving]
  - Diarrhoea [Recovered/Resolved]
  - Liver prolapse [Recovering/Resolving]
  - Lung operation [Recovering/Resolving]
  - Decreased appetite [Recovered/Resolved]
  - Diaphragmatic operation [Recovering/Resolving]
  - Weight decreased [Recovering/Resolving]
  - Immunodeficiency [Recovering/Resolving]
  - Liver disorder [Recovering/Resolving]
  - Pneumonia [Recovering/Resolving]
  - Lung disorder [Unknown]
  - Asthenia [Recovering/Resolving]
  - Bacterial infection [Unknown]

NARRATIVE: CASE EVENT DATE: 20191226
